FAERS Safety Report 9445499 (Version 1)
Quarter: 2013Q3

REPORT INFORMATION
  Report Type: Spontaneous
  Country: US (occurrence: None)
  Receive Date: 20130802
  Receipt Date: 20130802
  Transmission Date: 20140515
  Serious: Yes (Other)
  Sender: FDA-Public Use
  Company Number: USA/USA/13/0029322

PATIENT
  Age: 59 Year
  Sex: Male

DRUGS (6)
  1. OMEPRAZOLE [Suspect]
     Indication: GASTROOESOPHAGEAL REFLUX DISEASE
     Dosage: 20 MG, 1 IN 1 D
     Dates: start: 201009, end: 201108
  2. ATORVASTATIN (ATORVASTATIN) [Suspect]
     Dosage: 20 MG, 1 IN 1 D
     Dates: start: 2006, end: 201108
  3. GEMFIBROZIL [Suspect]
     Indication: ACUTE MYOCARDIAL INFARCTION
     Dosage: 600 MG, 2 IN 1 D
     Dates: start: 2006, end: 201108
  4. AMLODIPINE (AMLODIPINE) [Concomitant]
  5. ASPIRIN (ACETYLSALICYLIC ACID) [Concomitant]
  6. METOPROLOL (METOPROLOL SUCCINATE) [Concomitant]

REACTIONS (2)
  - Polymyositis [None]
  - Drug interaction [None]
